FAERS Safety Report 16577786 (Version 1)
Quarter: 2019Q3

REPORT INFORMATION
  Report Type: Spontaneous
  Country: US (occurrence: US)
  Receive Date: 20190716
  Receipt Date: 20190716
  Transmission Date: 20191004
  Serious: Yes (Hospitalization)
  Sender: FDA-Public Use
  Company Number: US-KYOWAKIRIN-2019BKK005558

PATIENT

DRUGS (2)
  1. CRYSVITA [Suspect]
     Active Substance: BUROSUMAB-TWZA
     Indication: HYPOPHOSPHATAEMIA
     Dosage: 10 MG, EVERY 4 WEEKS
     Route: 058
     Dates: start: 20181109
  2. CRYSVITA [Suspect]
     Active Substance: BUROSUMAB-TWZA
     Indication: HYPOPHOSPHATAEMIA
     Dosage: 30 MG, EVERY 4 WEEKS
     Route: 058
     Dates: start: 20181109

REACTIONS (4)
  - Adverse event [Unknown]
  - Blood phosphorus decreased [Recovering/Resolving]
  - Drug ineffective [Recovering/Resolving]
  - Vitamin D deficiency [Unknown]
